FAERS Safety Report 23842509 (Version 8)
Quarter: 2024Q3

REPORT INFORMATION
  Report Type: Spontaneous
  Country: CA (occurrence: CA)
  Receive Date: 20240510
  Receipt Date: 20240912
  Transmission Date: 20241017
  Serious: Yes (Hospitalization, Other)
  Sender: PFIZER
  Company Number: CA-PFIZER INC-PV202400060565

PATIENT
  Age: 32 Year
  Sex: Female

DRUGS (5)
  1. ZIRABEV [Suspect]
     Active Substance: BEVACIZUMAB-BVZR
     Indication: Glioblastoma
     Dosage: 820 MG, EVERY 3 WEEKS
     Dates: start: 20230828
  2. ZIRABEV [Suspect]
     Active Substance: BEVACIZUMAB-BVZR
     Dosage: 820 MG, EVERY 3 WEEKS
     Dates: start: 20240417
  3. ZIRABEV [Suspect]
     Active Substance: BEVACIZUMAB-BVZR
     Dosage: 820 MG, EVERY 3 WEEKS
     Route: 042
     Dates: start: 20240605
  4. ZIRABEV [Suspect]
     Active Substance: BEVACIZUMAB-BVZR
     Dosage: 820 MG EVERY 3 WEEKS
     Route: 042
     Dates: start: 20240626
  5. ZIRABEV [Suspect]
     Active Substance: BEVACIZUMAB-BVZR
     Dosage: 820 MG EVERY 3 WEEKS
     Route: 042
     Dates: start: 20240626

REACTIONS (9)
  - Pyrexia [Unknown]
  - Asthenia [Unknown]
  - Gait inability [Unknown]
  - Confusional state [Not Recovered/Not Resolved]
  - Hallucination [Not Recovered/Not Resolved]
  - Facial paralysis [Unknown]
  - Seizure [Unknown]
  - Fall [Unknown]
  - Muscular weakness [Not Recovered/Not Resolved]

NARRATIVE: CASE EVENT DATE: 20231201
